FAERS Safety Report 15627846 (Version 1)
Quarter: 2018Q4

REPORT INFORMATION
  Report Type: Spontaneous
  Country: US (occurrence: US)
  Receive Date: 20181116
  Receipt Date: 20181116
  Transmission Date: 20190205
  Serious: No
  Sender: FDA-Public Use
  Company Number: US-BAYER-2018-208650

PATIENT
  Age: 67 Year
  Sex: Male

DRUGS (1)
  1. STIVARGA [Suspect]
     Active Substance: REGORAFENIB
     Indication: COLORECTAL CANCER
     Dosage: 120 MG, QD FOR 21 DAYS THEN 7DAYS REST
     Dates: start: 20180829, end: 20181107

REACTIONS (2)
  - Off label use [None]
  - Hepatic enzyme increased [Not Recovered/Not Resolved]
